FAERS Safety Report 24937667 (Version 2)
Quarter: 2025Q1

REPORT INFORMATION
  Report Type: Spontaneous
  Country: DE (occurrence: DE)
  Receive Date: 20250206
  Receipt Date: 20250227
  Transmission Date: 20250409
  Serious: Yes (Death, Hospitalization)
  Sender: DELCATH SYSTEMS
  Company Number: DE-Delcath Systems-2170597

PATIENT
  Sex: Male

DRUGS (1)
  1. MELPHALAN [Suspect]
     Active Substance: MELPHALAN
     Indication: Cholangiocarcinoma
     Dates: start: 20250108, end: 20250108

REACTIONS (3)
  - Neutropenia [Not Recovered/Not Resolved]
  - Pneumonia [Fatal]
  - Leukopenia [Not Recovered/Not Resolved]
